FAERS Safety Report 5164024-1 (Version None)
Quarter: 2006Q4

REPORT INFORMATION
  Report Type: 
  Country: None (occurrence: None)
  Receive Date: 20061204
  Receipt Date: 20060907
  Transmission Date: 20070319
  Serious: Yes (Hospitalization)
  Sender: FDA-Public Use
  Company Number: JP-BOEHRINGER INGELHEIM PHARMACEUTICALS, INC.-2006-BP-10519NB

PATIENT
  Sex: Female
  Weight: 44 kg

DRUGS (10)
  1. BI-SIFROL TABLETS [Suspect]
     Indication: PARKINSON'S DISEASE
     Route: 048
     Dates: start: 20050317, end: 20060624
  2. MYSLEE [Suspect]
     Indication: INSOMNIA
     Route: 048
     Dates: start: 20050307, end: 20060606
  3. GOODMIN [Suspect]
     Indication: INSOMNIA
     Route: 048
     Dates: start: 20060606, end: 20060624
  4. HALCION [Suspect]
     Indication: INSOMNIA
     Route: 048
     Dates: start: 20050322, end: 20060606
  5. SYMMETREL [Suspect]
     Indication: PARKINSON'S DISEASE
     Route: 048
     Dates: start: 20050705, end: 20060624
  6. LENDORMIN [Concomitant]
     Indication: INSOMNIA
     Route: 048
     Dates: start: 20050317, end: 20050419
  7. LOXONIN (LOXOPROFEN SODIUM) [Concomitant]
     Indication: BACK PAIN
     Route: 048
     Dates: end: 20060624
  8. MYONAL (EPERISONE HYDROCHLORIDE) [Concomitant]
     Indication: BACK PAIN
     Route: 048
     Dates: end: 20060624
  9. GASTER [Concomitant]
     Indication: GASTRITIS
     Route: 048
     Dates: end: 20060624
  10. ALOSENIN [Concomitant]
     Indication: CONSTIPATION
     Route: 048
     Dates: end: 20060624

REACTIONS (1)
  - NEUROLEPTIC MALIGNANT SYNDROME [None]
